FAERS Safety Report 23144989 (Version 1)
Quarter: 2023Q4

REPORT INFORMATION
  Report Type: Report from Study
  Country: ES (occurrence: ES)
  Receive Date: 20231103
  Receipt Date: 20231103
  Transmission Date: 20240110
  Serious: Yes (Hospitalization, Other)
  Sender: FDA-Public Use
  Company Number: ES-BAXTER-2023BAX027392

PATIENT
  Age: 42 Year
  Sex: Female
  Weight: 52 kg

DRUGS (26)
  1. DOXORUBICIN HYDROCHLORIDE [Suspect]
     Active Substance: DOXORUBICIN HYDROCHLORIDE
     Indication: Non-Hodgkin^s lymphoma
     Dosage: 77 MG, CYCLIC (ON DAY 1 OF EACH CYCLE)
     Route: 042
     Dates: start: 20220721
  2. CYCLOPHOSPHAMIDE [Suspect]
     Active Substance: CYCLOPHOSPHAMIDE
     Indication: Non-Hodgkin^s lymphoma
     Dosage: 1148 MG, CYCLIC (ON DAY 1 OF EACH CYCLE, TOTAL)
     Route: 042
     Dates: start: 20220721
  3. RITUXIMAB [Suspect]
     Active Substance: RITUXIMAB
     Indication: Non-Hodgkin^s lymphoma
     Dosage: 574 MG ON DAY 1 OF EACH CYCLE, TOTAL
     Route: 042
     Dates: start: 20220721
  4. PREDNISONE [Suspect]
     Active Substance: PREDNISONE
     Indication: Non-Hodgkin^s lymphoma
     Dosage: 100 MG, CYCLIC (DAYS 1 TO 5 OF EACH CYCLE, EVERY 1 DAYS)
     Route: 048
     Dates: start: 20220721
  5. VENETOCLAX [Suspect]
     Active Substance: VENETOCLAX
     Indication: Non-Hodgkin^s lymphoma
  6. IBRUTINIB [Suspect]
     Active Substance: IBRUTINIB
     Indication: Non-Hodgkin^s lymphoma
  7. POLATUZUMAB VEDOTIN [Suspect]
     Active Substance: POLATUZUMAB VEDOTIN
     Indication: Non-Hodgkin^s lymphoma
     Dosage: 90.7 MG, CYCLIC (ON DAY 1 OF EACH CYCLE, TOTAL)
     Route: 042
     Dates: start: 20220721
  8. EPCORITAMAB [Suspect]
     Active Substance: EPCORITAMAB
     Indication: Non-Hodgkin^s lymphoma
     Dosage: 0.16 MG (PRIMING DOSE C1, D1, TOTAL)
     Route: 058
     Dates: start: 20220721, end: 20220721
  9. EPCORITAMAB [Suspect]
     Active Substance: EPCORITAMAB
     Dosage: 0.8 MG (INTERMEDIATE DOSE C1, D8, TOTAL)
     Route: 058
     Dates: start: 20220728, end: 20220728
  10. EPCORITAMAB [Suspect]
     Active Substance: EPCORITAMAB
     Dosage: 0.16 MG (RE-PRIMING, TOTAL)
     Route: 058
     Dates: start: 20221013, end: 20221013
  11. EPCORITAMAB [Suspect]
     Active Substance: EPCORITAMAB
     Dosage: 24 MG (FULL DOSE, EVERY 1 WEEKS)
     Route: 058
     Dates: start: 20220804, end: 20220818
  12. POLARAMINE [Concomitant]
     Active Substance: DEXCHLORPHENIRAMINE MALEATE
     Indication: Premedication
     Dosage: 50 MG, AS NEEDED
     Dates: start: 20220721
  13. PREDNISONE [Concomitant]
     Active Substance: PREDNISONE
     Indication: Premedication
     Dosage: 100 MG, 1X/DAY
     Dates: start: 20220722, end: 20221030
  14. HIBOR [Concomitant]
     Indication: Thrombosis prophylaxis
     Dosage: 3500 IU/L, 1X/DAY
     Dates: start: 20220722
  15. RIVOTRIL [Concomitant]
     Active Substance: CLONAZEPAM
     Indication: Anxiety
     Dosage: 2 MG
  16. FOLIC ACID [Concomitant]
     Active Substance: FOLIC ACID
     Indication: Folate deficiency
     Dosage: 5 MG,  2/DAYS
     Dates: start: 20220722
  17. SERTRALINE HYDROCHLORIDE [Concomitant]
     Active Substance: SERTRALINE HYDROCHLORIDE
     Indication: Anxiety
     Dosage: 100 MG, 1X/DAY
  18. TRAMADOL [Concomitant]
     Active Substance: TRAMADOL\TRAMADOL HYDROCHLORIDE
     Indication: Pain prophylaxis
     Dosage: 50 MG/G, AS NEEDED
     Dates: start: 20220718
  19. ALLOPURINOL [Concomitant]
     Active Substance: ALLOPURINOL
     Indication: Blood uric acid increased
     Dosage: 300 MG, 1X/DAY
     Dates: start: 20220722
  20. SULFAMETHOXAZOLE\TRIMETHOPRIM [Concomitant]
     Active Substance: SULFAMETHOXAZOLE\TRIMETHOPRIM
     Indication: Antibiotic prophylaxis
     Dosage: 160 MG, 3/WEEKS
     Dates: start: 20220722
  21. PANTOPRAZOLE [Concomitant]
     Active Substance: PANTOPRAZOLE
     Indication: Gastrointestinal disorder prophylaxis
     Dosage: 40 MG, 1X/DAY
     Dates: start: 20220718
  22. ACETAMINOPHEN [Concomitant]
     Active Substance: ACETAMINOPHEN
     Indication: Premedication
     Dosage: 1000 MG, AS NEEDED
     Dates: start: 20220721
  23. ACYCLOVIR [Concomitant]
     Active Substance: ACYCLOVIR
     Indication: Antibiotic prophylaxis
     Dosage: 800 MG, 2/DAYS
     Dates: start: 20220722
  24. ONDANSETRON [Concomitant]
     Active Substance: ONDANSETRON
     Indication: Nausea
     Dosage: 4 MG, 2/DAYS
     Dates: start: 20220718
  25. ONDANSETRON [Concomitant]
     Active Substance: ONDANSETRON
     Indication: Vomiting
  26. GRANULOCYTE COLONY-STIMULATING FACTOR NOS [Concomitant]
     Active Substance: GRANULOCYTE COLONY-STIMULATING FACTOR NOS
     Indication: Prophylaxis
     Dosage: 300 UG, 1X/DAY
     Dates: start: 20220728

REACTIONS (1)
  - Haemophagocytic lymphohistiocytosis [Recovered/Resolved]

NARRATIVE: CASE EVENT DATE: 20220830
